FAERS Safety Report 7406325-X (Version None)
Quarter: 2011Q2

REPORT INFORMATION
  Report Type: 
  Country: None (occurrence: None)
  Receive Date: 20110411
  Receipt Date: 20110407
  Transmission Date: 20111010
  Serious: Yes (Hospitalization)
  Sender: FDA-Public Use
  Company Number: DE-MERCK-1104DEU00033

PATIENT
  Age: 56 Year
  Sex: Female

DRUGS (2)
  1. ZOCOR [Suspect]
     Indication: HYPERCHOLESTEROLAEMIA
     Route: 048
     Dates: start: 20110101
  2. METOPROLOL SUCCINATE [Concomitant]
     Route: 065

REACTIONS (2)
  - COLITIS MICROSCOPIC [None]
  - ABDOMINAL DISCOMFORT [None]
